FAERS Safety Report 23959128 (Version 1)
Quarter: 2024Q2

REPORT INFORMATION
  Report Type: Spontaneous
  Country: DE (occurrence: DE)
  Receive Date: 20240611
  Receipt Date: 20240611
  Transmission Date: 20240715
  Serious: Yes (Life-Threatening, Hospitalization, Other)
  Sender: FDA-Public Use
  Company Number: None

PATIENT
  Age: 75 Year
  Sex: Male

DRUGS (5)
  1. CAPECITABINE [Suspect]
     Active Substance: CAPECITABINE
     Indication: Rectal adenocarcinoma
     Dosage: 3-0-3 FOR APPROX. 1 WEEK, STRENGTH: 500 MG?DAILY DOSE: 300 MILLIGRAM
     Route: 048
     Dates: start: 202404
  2. CAPECITABINE [Suspect]
     Active Substance: CAPECITABINE
     Indication: Rectal adenocarcinoma
     Dosage: 1-0-1 FOR APPROX. 1 WEEK, STRENGTH:150 MG?DAILY DOSE: 300 MILLIGRAM
     Route: 048
     Dates: start: 202404
  3. MIDAZOLAM [Concomitant]
     Active Substance: MIDAZOLAM
     Indication: Sedation
  4. SUFENTANIL [Concomitant]
     Active Substance: SUFENTANIL
     Indication: Sedation
  5. PIPERACILLIN SODIUM\TAZOBACTAM SODIUM [Concomitant]
     Active Substance: PIPERACILLIN SODIUM\TAZOBACTAM SODIUM
     Indication: Prophylaxis

REACTIONS (7)
  - Ventricular fibrillation [Not Recovered/Not Resolved]
  - Circulatory collapse [Not Recovered/Not Resolved]
  - Atrial fibrillation [Unknown]
  - Goitre [Unknown]
  - Emphysema [Unknown]
  - Renal cyst [Unknown]
  - Cerebral disorder [Unknown]

NARRATIVE: CASE EVENT DATE: 20240422
